FAERS Safety Report 9183562 (Version 1)
Quarter: 2012Q4

REPORT INFORMATION
  Report Type: 
  Country: US (occurrence: US)
  Receive Date: 20121030
  Receipt Date: 20121030
  Transmission Date: 20130627
  Serious: Yes (Death, Other)
  Sender: FDA-Public Use
  Company Number: US-ROXANE LABORATORIES, INC.-2012-RO-02188RO

PATIENT
  Age: 32 Year
  Sex: Female

DRUGS (3)
  1. OXCARBAZEPINE [Suspect]
     Route: 048
  2. LEVETIRACETAM [Suspect]
     Route: 048
  3. PROPOFOL [Suspect]
     Indication: SEDATION

REACTIONS (5)
  - Completed suicide [Fatal]
  - Respiratory depression [Unknown]
  - Depressed level of consciousness [Unknown]
  - Aggression [Unknown]
  - Disorientation [Recovered/Resolved]
